FAERS Safety Report 24027848 (Version 1)
Quarter: 2024Q2

REPORT INFORMATION
  Report Type: Report from Study
  Country: BE (occurrence: BE)
  Receive Date: 20240628
  Receipt Date: 20240628
  Transmission Date: 20240715
  Serious: Yes (Hospitalization, Other)
  Sender: FDA-Public Use
  Company Number: BE-ROCHE-2671712

PATIENT
  Age: 61 Year
  Sex: Male
  Weight: 79.7 kg

DRUGS (42)
  1. ATEZOLIZUMAB [Suspect]
     Active Substance: ATEZOLIZUMAB
     Indication: Small cell lung cancer extensive stage
     Dosage: SUBSEQUENT INFUSION RECEIVED ON 17/MAR/2020 DATE OF MOST RECENT DOSE: 06/APR/2020 PRIOR TO ONSET OF
     Route: 041
     Dates: start: 20200217
  2. CARBOPLATIN [Suspect]
     Active Substance: CARBOPLATIN
     Indication: Small cell lung cancer extensive stage
     Route: 065
     Dates: start: 20200217
  3. ETOPOSIDE [Suspect]
     Active Substance: ETOPOSIDE
     Indication: Small cell lung cancer extensive stage
     Route: 042
     Dates: start: 20200217
  4. ETOPOSIDE [Suspect]
     Active Substance: ETOPOSIDE
     Route: 048
  5. TAMSULOSIN HYDROCHLORIDE [Concomitant]
     Active Substance: TAMSULOSIN HYDROCHLORIDE
     Dates: start: 202012
  6. CHLORHEXIDINE GLUCONATE [Concomitant]
     Active Substance: CHLORHEXIDINE GLUCONATE
     Dates: start: 20200220, end: 20200603
  7. DEXAMETHASONE [Concomitant]
     Active Substance: DEXAMETHASONE
     Indication: Disease progression
     Dates: start: 20200217, end: 20200217
  8. DEXAMETHASONE [Concomitant]
     Active Substance: DEXAMETHASONE
     Dates: start: 20200406, end: 20200406
  9. DEXAMETHASONE [Concomitant]
     Active Substance: DEXAMETHASONE
     Dates: start: 20200317, end: 20200317
  10. DEXAMETHASONE [Concomitant]
     Active Substance: DEXAMETHASONE
     Dates: start: 20200504, end: 20200504
  11. DEXAMETHASONE [Concomitant]
     Active Substance: DEXAMETHASONE
     Dates: start: 20210125
  12. NETUPITANT [Concomitant]
     Active Substance: NETUPITANT
     Dates: start: 20200217, end: 20200217
  13. NETUPITANT [Concomitant]
     Active Substance: NETUPITANT
     Dates: start: 20200406, end: 20200406
  14. NETUPITANT [Concomitant]
     Active Substance: NETUPITANT
     Dates: start: 20200317, end: 20200317
  15. NETUPITANT [Concomitant]
     Active Substance: NETUPITANT
     Dates: start: 20200504, end: 20200504
  16. PALONOSETRON [Concomitant]
     Active Substance: PALONOSETRON
     Dates: start: 20200217, end: 20200217
  17. PALONOSETRON [Concomitant]
     Active Substance: PALONOSETRON
     Dates: start: 20200406, end: 20200406
  18. PALONOSETRON [Concomitant]
     Active Substance: PALONOSETRON
     Dates: start: 20200317, end: 20200317
  19. PALONOSETRON [Concomitant]
     Active Substance: PALONOSETRON
     Dates: start: 20200504, end: 20200504
  20. ACETYLCYSTEINE [Concomitant]
     Active Substance: ACETYLCYSTEINE
     Dates: start: 2010, end: 20200901
  21. FEBUXOSTAT [Concomitant]
     Active Substance: FEBUXOSTAT
  22. BELSAR [Concomitant]
  23. ROSUVASTATIN [Concomitant]
     Active Substance: ROSUVASTATIN
     Dates: start: 20191112
  24. PANTOPRAZOLE SODIUM [Concomitant]
     Active Substance: PANTOPRAZOLE SODIUM
     Dates: start: 20180615
  25. CYMBALTA [Concomitant]
     Active Substance: DULOXETINE HYDROCHLORIDE
     Dates: start: 20191212
  26. DOMINAL (BELGIUM) [Concomitant]
     Dates: start: 20191229
  27. GABAPENTIN [Concomitant]
     Active Substance: GABAPENTIN
     Dates: start: 20200106
  28. LYRICA [Concomitant]
     Active Substance: PREGABALIN
     Dates: start: 20200204
  29. DIAZEPAM [Concomitant]
     Active Substance: DIAZEPAM
     Dates: start: 20191229
  30. TRAZODONE [Concomitant]
     Active Substance: TRAZODONE HYDROCHLORIDE
     Dates: start: 20191229
  31. ZOLPIDEM [Concomitant]
     Active Substance: ZOLPIDEM TARTRATE
     Dates: start: 20191212
  32. OXYCODONE HYDROCHLORIDE [Concomitant]
     Active Substance: OXYCODONE HYDROCHLORIDE
     Dates: start: 20191229, end: 202007
  33. MOVICOL [Concomitant]
     Active Substance: POLYETHYLENE GLYCOL 3350\POTASSIUM CHLORIDE\SODIUM BICARBONATE\SODIUM CHLORIDE
     Dates: start: 20200204
  34. GLYCOPYRRONIUM\INDACATEROL [Concomitant]
     Active Substance: GLYCOPYRRONIUM\INDACATEROL
     Dates: start: 20150118
  35. QVAR [Concomitant]
     Active Substance: BECLOMETHASONE DIPROPIONATE
     Dates: start: 20141218, end: 202101
  36. ALIZAPRIDE HYDROCHLORIDE [Concomitant]
     Active Substance: ALIZAPRIDE HYDROCHLORIDE
     Dates: start: 20200408
  37. OXYCONTIN [Concomitant]
     Active Substance: OXYCODONE HYDROCHLORIDE
     Dates: start: 20200609
  38. SODIUM PICOSULFATE [Concomitant]
     Active Substance: SODIUM PICOSULFATE
     Dates: start: 20200728
  39. CLOPIDOGREL [Concomitant]
     Active Substance: CLOPIDOGREL BISULFATE
     Dates: start: 20200728, end: 20200901
  40. CLOPIDOGREL [Concomitant]
     Active Substance: CLOPIDOGREL BISULFATE
     Dates: start: 20200908
  41. ENTOCORT [Concomitant]
     Active Substance: BUDESONIDE
     Dates: start: 20200925
  42. BISACODYL [Concomitant]
     Active Substance: BISACODYL
     Dates: start: 20201016

REACTIONS (16)
  - Thrombocytopenia [Recovered/Resolved]
  - Neutropenia [Not Recovered/Not Resolved]
  - Confusional state [Recovered/Resolved]
  - Immune-mediated enterocolitis [Recovered/Resolved]
  - Lymphocyte count decreased [Recovered/Resolved]
  - Hyperthyroidism [Not Recovered/Not Resolved]
  - Hypomagnesaemia [Recovered/Resolved]
  - Anaemia [Recovered/Resolved]
  - Headache [Not Recovered/Not Resolved]
  - Alanine aminotransferase increased [Not Recovered/Not Resolved]
  - Dyspnoea [Not Recovered/Not Resolved]
  - Excessive eye blinking [Not Recovered/Not Resolved]
  - Postural tremor [Not Recovered/Not Resolved]
  - Asthenia [Not Recovered/Not Resolved]
  - Pain in extremity [Recovered/Resolved]
  - Bronchitis [Recovered/Resolved]

NARRATIVE: CASE EVENT DATE: 20200309
